FAERS Safety Report 7053678-0 (Version None)
Quarter: 2010Q4

REPORT INFORMATION
  Report Type: 
  Country: None (occurrence: None)
  Receive Date: 20101020
  Receipt Date: 20101011
  Transmission Date: 20110411
  Serious: Yes (Other)
  Sender: FDA-Public Use
  Company Number: US-NOVOPROD-309732

PATIENT
  Sex: Male
  Weight: 111.57 kg

DRUGS (6)
  1. NOVOLOG [Suspect]
     Indication: TYPE 2 DIABETES MELLITUS
     Dosage: 16 IU, QD
     Dates: start: 20100101, end: 20100605
  2. LANTUS [Concomitant]
     Indication: TYPE 2 DIABETES MELLITUS
     Dosage: 15 IU, QD
  3. METFORMIN HCL [Concomitant]
     Indication: TYPE 2 DIABETES MELLITUS
     Dosage: 2 TAB, BID
  4. ANTIVERT                           /00007101/ [Concomitant]
     Indication: DIZZINESS
  5. LOTREL [Concomitant]
     Indication: BLOOD PRESSURE INCREASED
     Dosage: 1 TAB, QD
  6. ATENOLOL [Concomitant]
     Indication: BLOOD PRESSURE INCREASED
     Dosage: 1 TAB, QD

REACTIONS (12)
  - ASTHENIA [None]
  - BLOOD GLUCOSE INCREASED [None]
  - DEHYDRATION [None]
  - DRUG INEFFECTIVE [None]
  - DYSPNOEA [None]
  - FATIGUE [None]
  - HEART RATE DECREASED [None]
  - HYPERHIDROSIS [None]
  - POLLAKIURIA [None]
  - RETCHING [None]
  - SOMNOLENCE [None]
  - VOMITING [None]
